FAERS Safety Report 10156203 (Version 1)
Quarter: 2014Q2

REPORT INFORMATION
  Report Type: Spontaneous
  Country: US (occurrence: US)
  Receive Date: 20140506
  Receipt Date: 20140506
  Transmission Date: 20141212
  Serious: Yes (Life-Threatening, Hospitalization, Other)
  Sender: FDA-Public Use
  Company Number: US-BRISTOL-MYERS SQUIBB COMPANY-20683074

PATIENT
  Age: 79 Year
  Sex: Male

DRUGS (2)
  1. ELIQUIS [Suspect]
  2. ATENOLOL [Concomitant]

REACTIONS (3)
  - Septic shock [Recovered/Resolved]
  - Calculus bladder [Recovered/Resolved]
  - Nephrolithiasis [Unknown]
